FAERS Safety Report 10608995 (Version 1)
Quarter: 2014Q4

REPORT INFORMATION
  Report Type: Spontaneous
  Country: IT (occurrence: IT)
  Receive Date: 20141125
  Receipt Date: 20141125
  Transmission Date: 20150529
  Serious: Yes (Hospitalization)
  Sender: FDA-Public Use
  Company Number: PHHY2014IT151612

PATIENT
  Sex: Male

DRUGS (5)
  1. KCL-RETARD ZYMA [Concomitant]
     Dosage: 70 DF, UNK
     Dates: start: 20140912, end: 20140912
  2. ENALAPRIL [Concomitant]
     Active Substance: ENALAPRIL
     Dosage: UNK
     Dates: start: 20140912, end: 20140912
  3. LORAZEPAM. [Suspect]
     Active Substance: LORAZEPAM
     Dosage: 165 MG, ONCE/SINGLE
     Route: 048
     Dates: start: 20140912, end: 20140912
  4. ALPRAZOLAM. [Suspect]
     Active Substance: ALPRAZOLAM
     Dosage: 20 MG, ONCE/SINGLE
     Route: 048
     Dates: start: 20140912, end: 20140912
  5. AMISULPRIDE [Suspect]
     Active Substance: AMISULPRIDE
     Dosage: 600 MG, ONCE/SINGLE
     Dates: start: 20140912, end: 20140912

REACTIONS (2)
  - Drug abuse [Recovering/Resolving]
  - Sopor [Recovering/Resolving]

NARRATIVE: CASE EVENT DATE: 20140912
